FAERS Safety Report 9280744 (Version 1)
Quarter: 2013Q2

REPORT INFORMATION
  Report Type: Report from Study
  Country: DE (occurrence: DE)
  Receive Date: 20130509
  Receipt Date: 20130509
  Transmission Date: 20140414
  Serious: Yes (Hospitalization)
  Sender: FDA-Public Use
  Company Number: DE-ROCHE-1178877

PATIENT
  Age: 45 Year
  Sex: Female
  Weight: 107 kg

DRUGS (3)
  1. BEVACIZUMAB [Suspect]
     Indication: BREAST CANCER
     Dosage: LAST DOSE PRIOR TO SAE WAS ON 27/DEC/2012
     Route: 042
     Dates: start: 20120920, end: 20121227
  2. PACLITAXEL [Suspect]
     Indication: BREAST CANCER
     Dosage: LAST DOSE PRIOR TO SAE WAS ON 03/JAN/2013
     Route: 042
     Dates: start: 20120920, end: 20130109
  3. DOXORUBICIN [Suspect]
     Indication: BREAST CANCER
     Dosage: LAST DOSE PRIOR TO SAE WAS ON 03/JAN/2013
     Route: 042
     Dates: start: 20120920, end: 20130109

REACTIONS (2)
  - Nail bed infection [Recovered/Resolved]
  - Polyneuropathy [Recovered/Resolved]
